FAERS Safety Report 6740062-X (Version None)
Quarter: 2010Q2

REPORT INFORMATION
  Report Type: 
  Country: None (occurrence: None)
  Receive Date: 20100525
  Receipt Date: 20100514
  Transmission Date: 20101027
  Serious: Yes (Hospitalization)
  Sender: FDA-Public Use
  Company Number: JP-JNJFOC-20100507251

PATIENT
  Age: 36 Year
  Sex: Male
  Weight: 56 kg

DRUGS (4)
  1. REMICADE [Suspect]
     Indication: CROHN'S DISEASE
     Dosage: 5 INFUSIONS ON UNSPECIFIED DATES
     Route: 042
  2. REMICADE [Suspect]
     Route: 042
  3. DECADRON [Concomitant]
     Indication: PREMEDICATION
  4. CHLORPHENIRAMINE MALEATE [Concomitant]
     Indication: PREMEDICATION

REACTIONS (4)
  - DIALYSIS [None]
  - PYREXIA [None]
  - TREMOR [None]
  - WHITE BLOOD CELL COUNT INCREASED [None]
